FAERS Safety Report 25332206 (Version 1)
Quarter: 2025Q2

REPORT INFORMATION
  Report Type: Spontaneous
  Country: US (occurrence: US)
  Receive Date: 20250519
  Receipt Date: 20250519
  Transmission Date: 20250716
  Serious: No
  Sender: B BRAUN
  Company Number: US-B.Braun Medical Inc.-2177021

PATIENT
  Age: 75 Year
  Sex: Male
  Weight: 69.8 kg

DRUGS (1)
  1. LACTATED RINGERS SOLUTION [Suspect]
     Active Substance: CALCIUM CHLORIDE\POTASSIUM CHLORIDE\SODIUM CHLORIDE\SODIUM LACTATE
     Indication: Surgery

REACTIONS (1)
  - Injection site pruritus [Recovered/Resolved]
